FAERS Safety Report 11056078 (Version 1)
Quarter: 2015Q2

REPORT INFORMATION
  Report Type: Spontaneous
  Country: SE (occurrence: SE)
  Receive Date: 20150422
  Receipt Date: 20150422
  Transmission Date: 20150821
  Serious: Yes (Hospitalization)
  Sender: FDA-Public Use
  Company Number: SE-TEVA-556751ISR

PATIENT
  Age: 41 Year
  Sex: Male

DRUGS (2)
  1. AMLODIPINE [Suspect]
     Active Substance: AMLODIPINE BESYLATE
     Route: 048
  2. ENALAPRIL PER ORAL [Suspect]
     Active Substance: ENALAPRIL
     Route: 048

REACTIONS (1)
  - Toxicity to various agents [Recovered/Resolved]
